FAERS Safety Report 9039261 (Version 1)
Quarter: 2013Q1

REPORT INFORMATION
  Report Type: Spontaneous
  Country: US (occurrence: None)
  Receive Date: 20130123
  Receipt Date: 20130123
  Transmission Date: 20140127
  Serious: Yes (Other)
  Sender: FDA-Public Use
  Company Number: None

PATIENT
  Age: 81 Year
  Sex: Male
  Weight: 97.52 kg

DRUGS (1)
  1. TRAMADOL [Suspect]
     Indication: PAIN
     Dates: start: 20130110, end: 20130117

REACTIONS (4)
  - Confusional state [None]
  - Delusion [None]
  - Hallucinations, mixed [None]
  - Disorientation [None]
